FAERS Safety Report 9126088 (Version 3)
Quarter: 2013Q2

REPORT INFORMATION
  Report Type: Spontaneous
  Country: US (occurrence: US)
  Receive Date: 20130228
  Receipt Date: 20130509
  Transmission Date: 20140414
  Serious: Yes (Hospitalization)
  Sender: FDA-Public Use
  Company Number: US-BIOGENIDEC-2013BI019397

PATIENT
  Age: 55 Year
  Sex: Male

DRUGS (2)
  1. AVONEX [Suspect]
     Indication: MULTIPLE SCLEROSIS
     Route: 030
     Dates: start: 20121215
  2. AVONEX [Suspect]
     Indication: MULTIPLE SCLEROSIS
     Route: 030
     Dates: start: 20130105

REACTIONS (5)
  - Pneumonia [Unknown]
  - Myocardial infarction [Unknown]
  - Renal failure [Unknown]
  - Cardiac failure congestive [Unknown]
  - Diabetes mellitus [Unknown]
